FAERS Safety Report 12799077 (Version 2)
Quarter: 2016Q4

REPORT INFORMATION
  Report Type: Spontaneous
  Country: SE (occurrence: SE)
  Receive Date: 20160930
  Receipt Date: 20161006
  Transmission Date: 20170207
  Serious: Yes (Life-Threatening, Hospitalization)
  Sender: FDA-Public Use
  Company Number: SE-CELGENEUS-SWE-2016095323

PATIENT
  Age: 71 Year
  Sex: Female
  Weight: 73 kg

DRUGS (17)
  1. DEXAMETHASONE. [Suspect]
     Active Substance: DEXAMETHASONE
     Dosage: DOSE REDUCED
     Route: 048
     Dates: start: 20160926
  2. REVLIMID [Suspect]
     Active Substance: LENALIDOMIDE
     Indication: PLASMA CELL MYELOMA
     Dosage: 10 MILLIGRAM
     Route: 048
     Dates: start: 20160516, end: 20160914
  3. ESOMEPRAZOLE [Concomitant]
     Active Substance: ESOMEPRAZOLE
     Indication: GASTRITIS PROPHYLAXIS
     Route: 048
     Dates: start: 20160513
  4. DARATUMUMAB [Suspect]
     Active Substance: DARATUMUMAB
     Indication: PLASMA CELL MYELOMA
     Route: 041
     Dates: start: 20160516, end: 20160905
  5. DARATUMUMAB [Suspect]
     Active Substance: DARATUMUMAB
     Route: 041
     Dates: start: 20160926
  6. HUMALIN [Concomitant]
     Active Substance: INSULIN NOS
     Indication: HYPERGLYCAEMIA
     Route: 058
     Dates: start: 20160902
  7. DERMOVATE [Concomitant]
     Active Substance: CLOBETASOL
     Indication: ATROPHIC VULVOVAGINITIS
     Route: 061
     Dates: start: 20110615
  8. MOMETASONE FUROATE. [Concomitant]
     Active Substance: MOMETASONE FUROATE
     Indication: ECZEMA
     Route: 061
     Dates: start: 20131202
  9. DIGOXIN. [Concomitant]
     Active Substance: DIGOXIN
     Indication: ATRIAL FIBRILLATION
     Dosage: 200 MILLIGRAM
     Route: 048
     Dates: start: 20160629
  10. FRAGMIN [Concomitant]
     Active Substance: DALTEPARIN SODIUM
     Route: 058
     Dates: start: 20160920
  11. DEXAMETHASONE. [Suspect]
     Active Substance: DEXAMETHASONE
     Indication: PLASMA CELL MYELOMA
     Route: 048
     Dates: start: 20160516, end: 20160912
  12. BEHEPAN [Concomitant]
     Active Substance: HYDROXOCOBALAMIN
     Indication: VITAMIN SUPPLEMENTATION
     Dosage: 20 MILLIGRAM
     Route: 048
     Dates: start: 20101022
  13. SIMVASTATIN. [Concomitant]
     Active Substance: SIMVASTATIN
     Indication: BLOOD CHOLESTEROL
     Dosage: 1 MILLIGRAM
     Route: 048
     Dates: start: 20120312
  14. ACETYLSALICYLIC ACID [Concomitant]
     Active Substance: ASPIRIN
     Indication: ECZEMA
     Dosage: 20 MILLIGRAM
     Route: 061
     Dates: start: 20131202
  15. ZOPICLONE [Concomitant]
     Active Substance: ZOPICLONE
     Indication: INSOMNIA
     Route: 048
     Dates: start: 20110131
  16. METOPROLOL. [Concomitant]
     Active Substance: METOPROLOL
     Indication: ATRIAL FIBRILLATION
     Route: 048
     Dates: start: 20160508
  17. FRAGMIN [Concomitant]
     Active Substance: DALTEPARIN SODIUM
     Indication: ATRIAL FIBRILLATION
     Dosage: .13 MILLIGRAM
     Route: 058
     Dates: start: 20160728

REACTIONS (1)
  - Pulmonary thrombosis [Unknown]

NARRATIVE: CASE EVENT DATE: 20160915
